FAERS Safety Report 5386865-8 (Version None)
Quarter: 2007Q3

REPORT INFORMATION
  Report Type: 
  Country: None (occurrence: None)
  Receive Date: 20070713
  Receipt Date: 20070705
  Transmission Date: 20080115
  Serious: Yes (Other)
  Sender: FDA-Public Use
  Company Number: FR-PFIZER INC-2007042872

PATIENT
  Sex: Male
  Weight: 72 kg

DRUGS (1)
  1. CHAMPIX [Suspect]
     Indication: SMOKING CESSATION THERAPY
     Dates: start: 20070315, end: 20070301

REACTIONS (5)
  - AGITATION [None]
  - DELIRIUM [None]
  - DEPRESSION [None]
  - HYPOMANIA [None]
  - INSOMNIA [None]
